FAERS Safety Report 4303137-0 (Version None)
Quarter: 2004Q1

REPORT INFORMATION
  Report Type: 
  Country: None (occurrence: None)
  Receive Date: 20040223
  Receipt Date: 20040213
  Transmission Date: 20041129
  Serious: Yes (Death)
  Sender: FDA-Public Use
  Company Number: USA-2003-0007230

PATIENT
  Age: 21 Year
  Sex: Female
  Weight: 69.8 kg

DRUGS (2)
  1. OXYCODONE HCL [Suspect]
  2. HYDROCODONE BITARTRATE [Suspect]

REACTIONS (19)
  - BRAIN CONTUSION [None]
  - BRAIN OEDEMA [None]
  - CONTUSION [None]
  - EXCORIATION [None]
  - FACIAL BONES FRACTURE [None]
  - GASTROINTESTINAL INJURY [None]
  - HAEMORRHAGE SUBCUTANEOUS [None]
  - HEAD INJURY [None]
  - JAW FRACTURE [None]
  - LACERATION [None]
  - LUNG INJURY [None]
  - PLEURAL EFFUSION [None]
  - PULMONARY OEDEMA [None]
  - RIB FRACTURE [None]
  - ROAD TRAFFIC ACCIDENT [None]
  - SUBARACHNOID HAEMORRHAGE [None]
  - SUBDURAL HAEMORRHAGE [None]
  - TOOTH DISORDER [None]
  - TOXICOLOGIC TEST ABNORMAL [None]
